FAERS Safety Report 8101191-1 (Version None)
Quarter: 2012Q1

REPORT INFORMATION
  Report Type: 
  Country: None (occurrence: None)
  Receive Date: 20120129
  Receipt Date: 20111013
  Transmission Date: 20120608
  Serious: No
  Sender: FDA-Public Use
  Company Number: US-ABBOTT-11P-163-0863975-00

PATIENT
  Age: 49 Year
  Sex: Female

DRUGS (13)
  1. PROZAC [Concomitant]
     Indication: ANXIETY
  2. METOPROLOL TARTRATE [Concomitant]
     Indication: BLOOD PRESSURE
  3. UNKNOWN PILL [Concomitant]
     Indication: FLUID RETENTION
     Dosage: IN THE MORNING
  4. AMITRIPTYLINE HCL [Concomitant]
     Indication: PAIN
  5. XANAX [Concomitant]
     Indication: ANXIETY
  6. COZAAR [Concomitant]
     Indication: BLOOD PRESSURE
  7. HUMULIN R [Concomitant]
     Indication: PRODUCT USED FOR UNKNOWN INDICATION
     Dosage: 42-43 UNITS BEFORE MEALS ORDERED; TAKES ONLY 2
  8. HUMIRA [Suspect]
     Indication: PSORIASIS
     Dates: start: 20110601
  9. ASPIRIN [Concomitant]
     Indication: CARDIAC DISORDER
  10. MULTI-VITAMINS [Concomitant]
     Indication: PRODUCT USED FOR UNKNOWN INDICATION
  11. PERCOCET [Concomitant]
     Indication: BACK PAIN
  12. PERCOCET [Concomitant]
     Indication: NECK PAIN
  13. SIMCOR [Concomitant]
     Indication: BLOOD CHOLESTEROL
     Dosage: 100-20 DAILY

REACTIONS (1)
  - THERAPEUTIC PRODUCT INEFFECTIVE [None]
